FAERS Safety Report 4387336-8 (Version None)
Quarter: 2004Q2

REPORT INFORMATION
  Report Type: 
  Country: None (occurrence: None)
  Receive Date: 20040630
  Receipt Date: 20040412
  Transmission Date: 20050107
  Serious: No
  Sender: FDA-Public Use
  Company Number: US-GLAXOSMITHKLINE-A0506846A

PATIENT
  Sex: Female

DRUGS (16)
  1. ADVAIR HFA [Suspect]
     Indication: ASTHMA
     Dosage: 1PUFF TWICE PER DAY
     Route: 055
     Dates: start: 20040101, end: 20040301
  2. ASPIRIN [Concomitant]
  3. HYDRALAZINE [Concomitant]
  4. FUROSEMIDE [Concomitant]
  5. NEXIUM [Concomitant]
  6. CALCIUM SUPPLEMENT [Concomitant]
  7. MULTI-VITAMIN [Concomitant]
  8. VITAMIN E [Concomitant]
  9. POTASSIUM [Concomitant]
  10. PAXIL [Concomitant]
  11. RISPERDAL [Concomitant]
  12. ZOCOR [Concomitant]
  13. VERAPAMIL [Concomitant]
  14. ZAROXOLYN [Concomitant]
  15. FLONASE [Concomitant]
  16. INSULIN [Concomitant]

REACTIONS (1)
  - BLOOD GLUCOSE INCREASED [None]
